FAERS Safety Report 10218367 (Version 1)
Quarter: 2014Q2

REPORT INFORMATION
  Report Type: Report from Study
  Country: JP (occurrence: JP)
  Receive Date: 20140605
  Receipt Date: 20140605
  Transmission Date: 20141212
  Serious: Yes (Hospitalization)
  Sender: FDA-Public Use
  Company Number: JP-AMGEN INC.-JPNCT2014040680

PATIENT
  Sex: Male
  Weight: 63 kg

DRUGS (8)
  1. DENOSUMAB [Suspect]
     Indication: METASTASES TO BONE
     Dosage: 120 MG, UNK
     Route: 058
     Dates: start: 20140226, end: 20140226
  2. DENOTAS [Concomitant]
     Dosage: 2 DF/DAY
     Route: 048
     Dates: start: 20140226, end: 20140228
  3. PACLITAXEL [Concomitant]
     Dosage: UNK
     Route: 065
     Dates: start: 20131128
  4. HUSTAZOL                           /00398402/ [Concomitant]
     Dosage: 20 MG, AS NEEDED
     Route: 048
  5. ASTOMIN                            /00426502/ [Concomitant]
     Dosage: 30 MG, QD
     Route: 048
     Dates: start: 20131002
  6. MUCODYNE [Concomitant]
     Dosage: 1500MG/DAY
     Route: 048
     Dates: start: 20131002
  7. ADALAT [Concomitant]
     Dosage: 40MG/DAY
     Route: 048
     Dates: start: 20131203
  8. MAGMITT [Concomitant]
     Dosage: 1500 MG, QD
     Route: 048
     Dates: start: 20131202

REACTIONS (2)
  - Confusional state [Recovered/Resolved]
  - Hypocalcaemia [Recovered/Resolved]
